FAERS Safety Report 8246775 (Version 3)
Quarter: 2012Q4

REPORT INFORMATION
  Report Type: 
  Country: CH (occurrence: CH)
  Receive Date: 20111116
  Receipt Date: 20121101
  Transmission Date: 20130627
  Serious: Yes (Other)
  Sender: FDA-Public Use
  Company Number: PHHY2011CH098362

PATIENT
  Age: 66 Year
  Sex: Female
  Weight: 65 kg

DRUGS (1)
  1. LEPONEX [Suspect]
     Dosage: 100 mg, Twice a day
     Route: 048
     Dates: start: 2004

REACTIONS (3)
  - Postmenopausal haemorrhage [Recovered/Resolved]
  - Mucosal atrophy [Not Recovered/Not Resolved]
  - Anal fissure [Recovered/Resolved]
